FAERS Safety Report 17091861 (Version 7)
Quarter: 2020Q1

REPORT INFORMATION
  Report Type: Spontaneous
  Country: US (occurrence: US)
  Receive Date: 20191129
  Receipt Date: 20200131
  Transmission Date: 20200409
  Serious: No
  Sender: FDA-Public Use
  Company Number: US-UNITED THERAPEUTICS-UNT-2019-019847

PATIENT
  Age: 77 Year
  Sex: Female
  Weight: 83.45 kg

DRUGS (5)
  1. IRON [Concomitant]
     Active Substance: IRON
     Indication: ANAEMIA
     Dosage: 18 MG, DAILY
     Route: 048
     Dates: start: 20191230
  2. ORENITRAM [Suspect]
     Active Substance: TREPROSTINIL
     Dosage: 1.75 MG, TID
     Route: 048
  3. ORENITRAM [Suspect]
     Active Substance: TREPROSTINIL
     Indication: PULMONARY ARTERIAL HYPERTENSION
     Dosage: 0.375 MG, TID
     Route: 048
     Dates: start: 20191115
  4. ORENITRAM [Suspect]
     Active Substance: TREPROSTINIL
     Dosage: 1.125 MG, TID
     Route: 048
  5. ORENITRAM [Suspect]
     Active Substance: TREPROSTINIL
     Dosage: 0.75 MG, TID
     Route: 048

REACTIONS (6)
  - Product dose omission [Unknown]
  - Dyspnoea [Unknown]
  - Therapy non-responder [Unknown]
  - Gastroenteritis viral [Unknown]
  - Oedema peripheral [Not Recovered/Not Resolved]
  - Urine output decreased [Recovering/Resolving]

NARRATIVE: CASE EVENT DATE: 2019
